FAERS Safety Report 19172057 (Version 4)
Quarter: 2021Q3

REPORT INFORMATION
  Report Type: Report from Study
  Country: AU (occurrence: AU)
  Receive Date: 20210423
  Receipt Date: 20210708
  Transmission Date: 20211014
  Serious: Yes (Other)
  Sender: FDA-Public Use
  Company Number: AU-ROCHE-2808879

PATIENT
  Sex: Male

DRUGS (1)
  1. EMICIZUMAB. [Suspect]
     Active Substance: EMICIZUMAB
     Indication: FACTOR VIII DEFICIENCY
     Dosage: STARTED 4 YEARS AGO.
     Route: 065

REACTIONS (4)
  - Injury [Unknown]
  - Nephrolithiasis [Unknown]
  - Myocardial infarction [Unknown]
  - Renal haemorrhage [Unknown]
